FAERS Safety Report 8443590-4 (Version None)
Quarter: 2012Q2

REPORT INFORMATION
  Report Type: 
  Country: None (occurrence: None)
  Receive Date: 20120618
  Receipt Date: 20120612
  Transmission Date: 20120825
  Serious: No
  Sender: FDA-Public Use
  Company Number: US-PFIZER INC-2012141825

PATIENT
  Sex: Male
  Weight: 95.238 kg

DRUGS (4)
  1. SOTALOL HCL [Concomitant]
     Indication: ARRHYTHMIA SUPRAVENTRICULAR
     Dosage: 120 MG, 2X/DAY
  2. NITROSTAT [Suspect]
     Indication: CHEST PAIN
     Dosage: UNK
     Route: 048
  3. SOTALOL HCL [Concomitant]
     Indication: ATRIAL FIBRILLATION
  4. NITROSTAT [Suspect]
     Indication: CARDIAC DISORDER

REACTIONS (2)
  - DRUG EFFECT DECREASED [None]
  - CHEST PAIN [None]
